FAERS Safety Report 6221874-8 (Version None)
Quarter: 2009Q2

REPORT INFORMATION
  Report Type: 
  Country: None (occurrence: None)
  Receive Date: 20090609
  Receipt Date: 20090609
  Transmission Date: 20091009
  Serious: Yes (Life-Threatening, Hospitalization)
  Sender: FDA-Public Use
  Company Number: None

PATIENT
  Age: 87 Year
  Sex: Male
  Weight: 71 kg

DRUGS (2)
  1. GEODON [Suspect]
     Indication: DELIRIUM
     Dosage: ORAL
     Route: 048
  2. , [Concomitant]

REACTIONS (2)
  - OVERDOSE [None]
  - RESPIRATORY ARREST [None]
